FAERS Safety Report 6689293-8 (Version None)
Quarter: 2010Q2

REPORT INFORMATION
  Report Type: 
  Country: None (occurrence: None)
  Receive Date: 20100420
  Receipt Date: 20100407
  Transmission Date: 20101027
  Serious: Yes (Hospitalization, Other)
  Sender: FDA-Public Use
  Company Number: CH-ELI_LILLY_AND_COMPANY-CH201004002456

PATIENT
  Age: 68 Year
  Sex: Female

DRUGS (10)
  1. ZYPREXA [Suspect]
     Dosage: 7.5 MG, DAILY (1/D)
     Route: 048
     Dates: end: 20100307
  2. ZYPREXA [Suspect]
     Dosage: 7.5 MG, DAILY (1/D)
     Route: 048
     Dates: start: 20100309
  3. ANXIOLIT [Concomitant]
     Dosage: 7.5 MG, 3/D
     Route: 048
     Dates: end: 20100310
  4. ORFIRIL /00228502/ [Concomitant]
     Dosage: 600 MG, EACH MORNING
     Route: 048
     Dates: end: 20100307
  5. ORFIRIL /00228502/ [Concomitant]
     Dosage: 600 MG, EACH MORNING
     Route: 048
     Dates: start: 20100309
  6. ORFIRIL /00228502/ [Concomitant]
     Dosage: 750 MG, EACH EVENING
     Route: 048
     Dates: end: 20100307
  7. ORFIRIL /00228502/ [Concomitant]
     Dosage: 750 MG, EACH EVENING
     Route: 048
     Dates: start: 20100309
  8. ZOLOFT [Concomitant]
     Dosage: 25 MG, DAILY (1/D)
     Route: 048
     Dates: start: 20100209
  9. ENOXAPARIN SODIUM [Concomitant]
     Dosage: 40 MG, DAILY (1/D)
     Dates: start: 20100219
  10. ESIDRIX [Concomitant]
     Dosage: 25 MG, DAILY (1/D)
     Route: 048
     Dates: start: 20100226

REACTIONS (8)
  - DIABETES INSIPIDUS [None]
  - HEPATIC FAILURE [None]
  - HYPERNATRAEMIA [None]
  - HYPOALBUMINAEMIA [None]
  - MENINGIOMA [None]
  - RENAL FAILURE ACUTE [None]
  - SOMNOLENCE [None]
  - THERAPEUTIC AGENT TOXICITY [None]
